FAERS Safety Report 6998354-5 (Version None)
Quarter: 2010Q3

REPORT INFORMATION
  Report Type: 
  Country: None (occurrence: None)
  Receive Date: 20100920
  Receipt Date: 20100910
  Transmission Date: 20110219
  Serious: Yes (Hospitalization, Disabling)
  Sender: FDA-Public Use
  Company Number: JP-GENZYME-THYM-1001830

PATIENT
  Sex: Female
  Weight: 14 kg

DRUGS (13)
  1. THYMOGLOBULIN [Suspect]
     Indication: APLASTIC ANAEMIA
     Dosage: 50 MG, QD
     Route: 042
     Dates: start: 20100208, end: 20100212
  2. METHYLPREDNISOLONE SODIUM SUCCINATE [Concomitant]
     Indication: PREMEDICATION
     Dosage: UNK
     Dates: start: 20100208, end: 20100314
  3. CYCLOSPORINE [Concomitant]
     Indication: APLASTIC ANAEMIA
     Dosage: UNK
     Dates: start: 20091217, end: 20100209
  4. CYCLOSPORINE [Concomitant]
     Dosage: UNK
     Dates: start: 20100301, end: 20100714
  5. NEUPOGEN [Concomitant]
     Indication: APLASTIC ANAEMIA
     Dosage: UNK
     Dates: start: 20100328, end: 20100517
  6. LENOGRASTIM [Concomitant]
     Indication: APLASTIC ANAEMIA
     Dosage: UNK
     Dates: start: 20100107, end: 20100225
  7. NARTOGRASTIM [Concomitant]
     Indication: APLASTIC ANAEMIA
     Dosage: UNK
     Dates: start: 20091210, end: 20100106
  8. NARTOGRASTIM [Concomitant]
     Dosage: UNK
     Dates: start: 20100226, end: 20100327
  9. ACYCLOVIR SODIUM [Concomitant]
     Indication: PROPHYLAXIS
     Dosage: UNK
     Dates: start: 20100716, end: 20100827
  10. IMMUNE GLOBULIN (HUMAN) [Concomitant]
     Indication: PROPHYLAXIS
     Dosage: UNK
     Dates: start: 20100716
  11. CYCLOPHOSPHAMIDE [Concomitant]
     Indication: BONE MARROW TRANSPLANT
     Dosage: UNK
     Dates: start: 20100716, end: 20100719
  12. TACROLIMUS [Concomitant]
     Indication: BONE MARROW TRANSPLANT
     Dosage: UNK
     Dates: start: 20100722
  13. METHOTREXATE SODIUM [Concomitant]
     Indication: BONE MARROW TRANSPLANT
     Dosage: UNK
     Dates: start: 20100724, end: 20100803

REACTIONS (4)
  - CEREBRAL INFARCTION [None]
  - FEBRILE NEUTROPENIA [None]
  - PYREXIA [None]
  - THERAPEUTIC RESPONSE DECREASED [None]
